FAERS Safety Report 8051231-3 (Version None)
Quarter: 2012Q1

REPORT INFORMATION
  Report Type: 
  Country: None (occurrence: None)
  Receive Date: 20120117
  Receipt Date: 20120110
  Transmission Date: 20120608
  Serious: Yes (Death, Other)
  Sender: FDA-Public Use
  Company Number: US-ASTRAZENECA-2012SE01911

PATIENT
  Age: 44 Year
  Sex: Male

DRUGS (1)
  1. SEROQUEL XR [Suspect]
     Dosage: 900-1200 MG PER DAY
     Route: 048

REACTIONS (4)
  - SYNCOPE [None]
  - SUICIDAL IDEATION [None]
  - FALL [None]
  - ANTIPSYCHOTIC DRUG LEVEL ABOVE THERAPEUTIC [None]
